FAERS Safety Report 10339708 (Version 3)
Quarter: 2014Q3

REPORT INFORMATION
  Report Type: Spontaneous
  Country: JP (occurrence: JP)
  Receive Date: 20140724
  Receipt Date: 20140825
  Transmission Date: 20150326
  Serious: Yes (Death, Life-Threatening)
  Sender: FDA-Public Use
  Company Number: JP-B.I. PHARMACEUTICALS,INC./RIDGEFIELD-2014-BI-33946NB

PATIENT
  Age: 61 Year
  Sex: Male

DRUGS (9)
  1. VITAMEDIN [Concomitant]
     Active Substance: CYANOCOBALAMIN\PYRIDOXINE HYDROCHLORIDE\THIAMINE
     Dosage: DAILY DOSE:1DF
     Route: 042
     Dates: start: 20140405, end: 20140411
  2. UNKNOWN DRUG [Concomitant]
     Active Substance: UNSPECIFIED INGREDIENT
     Dosage: 500 ML
     Route: 042
     Dates: start: 20140404, end: 20140405
  3. PRAZAXA [Suspect]
     Active Substance: DABIGATRAN ETEXILATE MESYLATE
     Indication: EMBOLIC STROKE
     Dosage: 300 NR
     Route: 048
     Dates: start: 20140405, end: 20140406
  4. RADICUT [Concomitant]
     Active Substance: EDARAVONE
     Dosage: 60 MG
     Route: 042
     Dates: start: 2014, end: 20140411
  5. SOLDEM 3A [Concomitant]
     Active Substance: CARBOHYDRATES\POTASSIUM CHLORIDE\SODIUM CHLORIDE\SODIUM LACTATE
     Dosage: 1000 ML
     Route: 042
     Dates: start: 20140404, end: 20140414
  6. GASTER [Concomitant]
     Active Substance: FAMOTIDINE
     Dosage: 20 MG
     Route: 042
  7. DILTIAZEM HYDROCHLORIDE. [Concomitant]
     Active Substance: DILTIAZEM HYDROCHLORIDE
     Route: 065
  8. GLYCERIN. [Concomitant]
     Active Substance: GLYCERIN
     Dosage: 600 ML
     Route: 042
     Dates: start: 20140405, end: 20140411
  9. PRIMPERAN [Concomitant]
     Active Substance: METOCLOPRAMIDE HYDROCHLORIDE
     Dosage: 10 MG
     Route: 042
     Dates: start: 20140404, end: 20140408

REACTIONS (5)
  - Cerebellar haematoma [Fatal]
  - Cerebral infarction [Not Recovered/Not Resolved]
  - Drug ineffective [Unknown]
  - Brain herniation [Fatal]
  - Cerebral infarction [Fatal]

NARRATIVE: CASE EVENT DATE: 20140406
